FAERS Safety Report 6140577-1 (Version None)
Quarter: 2009Q2

REPORT INFORMATION
  Report Type: 
  Country: None (occurrence: None)
  Receive Date: 20090402
  Receipt Date: 20090312
  Transmission Date: 20091009
  Serious: Yes (Hospitalization)
  Sender: FDA-Public Use
  Company Number: FR-JNJFOC-20090303813

PATIENT
  Sex: Male

DRUGS (5)
  1. HALDOL [Suspect]
     Indication: ABNORMAL BEHAVIOUR
     Route: 048
  2. NOZINAN [Suspect]
     Indication: ABNORMAL BEHAVIOUR
     Route: 048
  3. LARGACTIL [Suspect]
     Indication: ABNORMAL BEHAVIOUR
     Route: 048
  4. VALIUM [Concomitant]
     Indication: ABNORMAL BEHAVIOUR
     Route: 048
  5. LEPTICUR [Concomitant]
     Indication: ABNORMAL BEHAVIOUR
     Route: 048

REACTIONS (4)
  - ABDOMINAL PAIN [None]
  - C-REACTIVE PROTEIN INCREASED [None]
  - CONSTIPATION [None]
  - NEUROLEPTIC MALIGNANT SYNDROME [None]
